FAERS Safety Report 19457587 (Version 1)
Quarter: 2021Q2

REPORT INFORMATION
  Report Type: Spontaneous
  Country: US (occurrence: US)
  Receive Date: 20210624
  Receipt Date: 20210624
  Transmission Date: 20210717
  Serious: Yes (Death, Hospitalization, Other)
  Sender: FDA-Public Use
  Company Number: US-B.I. PHARMACEUTICALS,INC./RIDGEFIELD-2021-BI-110803

PATIENT
  Age: 78 Year

DRUGS (1)
  1. PRADAXA [Suspect]
     Active Substance: DABIGATRAN ETEXILATE MESYLATE
     Indication: PRODUCT USED FOR UNKNOWN INDICATION
     Dosage: 150MG; 1 CAPSULE DAILY
     Route: 065

REACTIONS (4)
  - Underdose [Unknown]
  - Transient ischaemic attack [Not Recovered/Not Resolved]
  - Urinary tract infection [Recovered/Resolved]
  - Death [Fatal]

NARRATIVE: CASE EVENT DATE: 20210601
